FAERS Safety Report 23558982 (Version 1)
Quarter: 2024Q1

REPORT INFORMATION
  Report Type: Spontaneous
  Country: US (occurrence: None)
  Receive Date: 20240222
  Receipt Date: 20240222
  Transmission Date: 20240410
  Serious: Yes (Disabling)
  Sender: FDA-Public Use
  Company Number: None

PATIENT
  Age: 75 Year
  Sex: Male
  Weight: 85.5 kg

DRUGS (7)
  1. PRALUENT [Suspect]
     Active Substance: ALIROCUMAB
     Indication: Blood cholesterol increased
     Dosage: OTHER QUANTITY : 1 INJECTION(S);?FREQUENCY : EVERY OTHER WEEK;?
     Route: 030
     Dates: start: 20200613, end: 20230523
  2. ZETIA [Concomitant]
     Active Substance: EZETIMIBE
  3. SIMVASTATIN [Concomitant]
     Active Substance: SIMVASTATIN
  4. ASPIRIN [Concomitant]
     Active Substance: ASPIRIN
  5. prilosec [Concomitant]
  6. VITAMIN E [Concomitant]
     Active Substance: .ALPHA.-TOCOPHEROL
  7. FISH OIL [Concomitant]
     Active Substance: FISH OIL

REACTIONS (2)
  - Nightmare [None]
  - Insomnia [None]

NARRATIVE: CASE EVENT DATE: 20221015
